FAERS Safety Report 8723264 (Version 7)
Quarter: 2013Q1

REPORT INFORMATION
  Report Type: Report from Study
  Country: JP (occurrence: JP)
  Receive Date: 20120814
  Receipt Date: 20130117
  Transmission Date: 20140127
  Serious: Yes (Hospitalization)
  Sender: FDA-Public Use
  Company Number: JP-JNJFOC-20120805431

PATIENT
  Age: 60 Year
  Sex: Male
  Weight: 64 kg

DRUGS (9)
  1. STELARA [Suspect]
     Indication: PSORIASIS
     Dosage: TEN MONTHS OF THERAPY
     Route: 058
     Dates: start: 20111003
  2. STELARA [Suspect]
     Indication: PSORIASIS
     Route: 058
     Dates: start: 20111030
  3. STELARA [Suspect]
     Indication: PSORIASIS
     Route: 058
     Dates: start: 20120124
  4. STELARA [Suspect]
     Indication: PSORIASIS
     Route: 058
     Dates: start: 20120417
  5. STELARA [Suspect]
     Indication: PSORIASIS
     Route: 058
     Dates: start: 20120704
  6. STELARA [Suspect]
     Indication: PSORIASIS
     Route: 058
     Dates: start: 20120925
  7. IMMUNOSUPPRESSIVE THERAPY [Concomitant]
  8. ANTEBATE [Concomitant]
     Indication: PSORIASIS
     Route: 061
     Dates: start: 20061001
  9. OXAROL [Concomitant]
     Indication: PSORIASIS
     Route: 061
     Dates: start: 20061001

REACTIONS (1)
  - Pneumonia [Recovered/Resolved]
